FAERS Safety Report 8161747 (Version 4)
Quarter: 2013Q2

REPORT INFORMATION
  Report Type: Report from Study
  Country: US (occurrence: US)
  Receive Date: 20110929
  Receipt Date: 20130528
  Transmission Date: 20140414
  Serious: Yes (Hospitalization)
  Sender: FDA-Public Use
  Company Number: US-JNJFOC-20110908700

PATIENT
  Age: 12 Year
  Sex: Male
  Weight: 65.7 kg

DRUGS (2)
  1. INFLIXIMAB,RECOMBINANT [Suspect]
     Indication: COLITIS ULCERATIVE
     Route: 042
     Dates: start: 20110309, end: 20110706
  2. 5-ASA [Concomitant]
     Route: 048

REACTIONS (1)
  - Colitis ulcerative [Recovered/Resolved]
